FAERS Safety Report 4689152-6 (Version None)
Quarter: 2005Q2

REPORT INFORMATION
  Report Type: 
  Country: None (occurrence: None)
  Receive Date: 20050613
  Receipt Date: 20050523
  Transmission Date: 20051028
  Serious: Yes (Other)
  Sender: FDA-Public Use
  Company Number: PHBS2005BE07261

PATIENT
  Age: 81 Year
  Sex: Female
  Weight: 37 kg

DRUGS (3)
  1. ZOMETA [Suspect]
     Indication: METASTASES TO BONE
     Dosage: 4 MG EVERY 4 WEEKS
     Route: 065
     Dates: start: 20041201, end: 20050501
  2. DURAGESIC-100 [Concomitant]
  3. LASIX [Concomitant]

REACTIONS (2)
  - ASEPTIC NECROSIS BONE [None]
  - OSTEONECROSIS [None]
